FAERS Safety Report 17574165 (Version 2)
Quarter: 2020Q2

REPORT INFORMATION
  Report Type: Spontaneous
  Country: IT (occurrence: IT)
  Receive Date: 20200323
  Receipt Date: 20200403
  Transmission Date: 20200713
  Serious: Yes (Other)
  Sender: FDA-Public Use
  Company Number: IT-BEH-2020114694

PATIENT
  Age: 40 Year
  Sex: Female

DRUGS (1)
  1. PRIVIGEN [Suspect]
     Active Substance: HUMAN IMMUNOGLOBULIN G
     Indication: VASCULITIS
     Dosage: 35 GRAM
     Route: 042

REACTIONS (5)
  - HIV antibody positive [Recovered/Resolved]
  - No adverse event [Unknown]
  - Suspected transmission of an infectious agent via product [Recovered/Resolved]
  - Product use in unapproved indication [Unknown]
  - HIV antigen positive [Recovered/Resolved]

NARRATIVE: CASE EVENT DATE: 20200213
